FAERS Safety Report 8420822-X (Version None)
Quarter: 2012Q2

REPORT INFORMATION
  Report Type: 
  Country: None (occurrence: None)
  Receive Date: 20120608
  Receipt Date: 20120606
  Transmission Date: 20120825
  Serious: Yes (Other)
  Sender: FDA-Public Use
  Company Number: US-PFIZER INC-2012135685

PATIENT
  Sex: Female
  Weight: 71.7 kg

DRUGS (2)
  1. NEURONTIN [Suspect]
     Indication: PANIC ATTACK
     Dosage: 400 MG, 3X/DAY
     Route: 048
  2. NEURONTIN [Suspect]
     Indication: ANXIETY

REACTIONS (1)
  - WEIGHT INCREASED [None]
